FAERS Safety Report 14641084 (Version 1)
Quarter: 2018Q1

REPORT INFORMATION
  Report Type: Spontaneous
  Country: IT (occurrence: IT)
  Receive Date: 20180315
  Receipt Date: 20180315
  Transmission Date: 20180509
  Serious: Yes (Hospitalization, Other)
  Sender: FDA-Public Use
  Company Number: IT-AUROBINDO-AUR-APL-2018-013625

PATIENT
  Age: 13 Year
  Sex: Female
  Weight: 51 kg

DRUGS (3)
  1. ORUDIS [Suspect]
     Active Substance: KETOPROFEN
     Dosage: 300 MILLIGRAM
     Route: 048
     Dates: start: 20170831, end: 20170831
  2. MONTELUKAST SODIUM. [Suspect]
     Active Substance: MONTELUKAST SODIUM
     Dosage: 15 MILLIGRAM
     Route: 048
     Dates: start: 20170831, end: 20170831
  3. PARACETAMOL [Suspect]
     Active Substance: ACETAMINOPHEN
     Dosage: 12 GRAM
     Route: 065
     Dates: start: 20170831, end: 20170831

REACTIONS (3)
  - Abdominal pain [Recovered/Resolved]
  - Vomiting [Recovered/Resolved]
  - Drug abuse [Recovered/Resolved]

NARRATIVE: CASE EVENT DATE: 20170831
